FAERS Safety Report 7549222-1 (Version None)
Quarter: 2011Q2

REPORT INFORMATION
  Report Type: 
  Country: None (occurrence: None)
  Receive Date: 20110615
  Receipt Date: 20110610
  Transmission Date: 20111010
  Serious: Yes (Life-Threatening)
  Sender: FDA-Public Use
  Company Number: US-ASTRAZENECA-2011SE35996

PATIENT
  Age: 11 Year
  Sex: Male
  Weight: 35.7 kg

DRUGS (7)
  1. PROPOFOL [Suspect]
     Indication: GENERAL ANAESTHESIA
     Route: 042
  2. PANCURONIUM [Concomitant]
  3. PROPRANOLOL [Concomitant]
  4. ANTICHOLINESTERASE/ANTICHOLINERGIC AGENTS [Suspect]
  5. ONDANSETRON [Suspect]
  6. PENTOTHAL [Concomitant]
  7. ISOFLURANE [Suspect]
     Indication: GENERAL ANAESTHESIA
     Route: 055

REACTIONS (1)
  - TORSADE DE POINTES [None]
